FAERS Safety Report 21192630 (Version 1)
Quarter: 2022Q3

REPORT INFORMATION
  Report Type: Spontaneous
  Country: RU (occurrence: RU)
  Receive Date: 20220810
  Receipt Date: 20220810
  Transmission Date: 20221027
  Serious: No
  Sender: FDA-Public Use
  Company Number: RU-009507513-2208RUS003124

PATIENT
  Sex: Female

DRUGS (1)
  1. LAGEVRIO [Suspect]
     Active Substance: MOLNUPIRAVIR
     Indication: COVID-19 treatment
     Dosage: 2 DOSAGE FORM, BID (4 CAPSULES A DAY (2 AT A TIME))

REACTIONS (2)
  - Product use issue [Unknown]
  - Product communication issue [Unknown]
